FAERS Safety Report 17494979 (Version 1)
Quarter: 2020Q1

REPORT INFORMATION
  Report Type: Spontaneous
  Country: US (occurrence: US)
  Receive Date: 20200221
  Receipt Date: 20200221
  Transmission Date: 20200409
  Serious: Yes (Hospitalization)
  Sender: FDA-Public Use
  Company Number: None

PATIENT
  Sex: Male
  Weight: 89.45 kg

DRUGS (3)
  1. DEXAMETHASONE. [Concomitant]
     Active Substance: DEXAMETHASONE
  2. LENALIDOMIDE [Concomitant]
     Active Substance: LENALIDOMIDE
  3. BORTEZOMIB. [Suspect]
     Active Substance: BORTEZOMIB
     Dates: start: 20170723

REACTIONS (7)
  - Fatigue [None]
  - Pulmonary congestion [None]
  - Platelet count decreased [None]
  - Productive cough [None]
  - Haemoptysis [None]
  - Loss of consciousness [None]
  - Diarrhoea [None]

NARRATIVE: CASE EVENT DATE: 20170723
